FAERS Safety Report 20725006 (Version 1)
Quarter: 2022Q2

REPORT INFORMATION
  Report Type: Report from Study
  Country: US (occurrence: US)
  Receive Date: 20220419
  Receipt Date: 20220419
  Transmission Date: 20220720
  Serious: Yes (Death, Life-Threatening)
  Sender: FDA-Public Use
  Company Number: US-PFIZER INC-202200524127

PATIENT
  Age: 55 Year
  Sex: Male

DRUGS (6)
  1. FENTANYL CITRATE [Suspect]
     Active Substance: FENTANYL CITRATE
     Dosage: UNK
  2. CARFENTANIL [Suspect]
     Active Substance: CARFENTANIL
     Dosage: UNK
  3. BENZOYLECGONINE [Suspect]
     Active Substance: BENZOYLECGONINE
     Dosage: UNK
  4. COCAINE [Suspect]
     Active Substance: COCAINE
     Dosage: UNK
  5. ECGONINE [Suspect]
     Active Substance: ECGONINE
     Dosage: UNK
  6. DICLOFENAC SODIUM [Suspect]
     Active Substance: DICLOFENAC SODIUM
     Dosage: UNK

REACTIONS (4)
  - Drug abuse [Fatal]
  - Toxicity to various agents [Fatal]
  - Respiratory rate decreased [Unknown]
  - Pupillary reflex impaired [Unknown]
